FAERS Safety Report 16961372 (Version 1)
Quarter: 2019Q4

REPORT INFORMATION
  Report Type: Spontaneous
  Country: US (occurrence: US)
  Receive Date: 20191024
  Receipt Date: 20191024
  Transmission Date: 20200122
  Serious: Yes (Hospitalization)
  Sender: FDA-Public Use
  Company Number: None

PATIENT
  Age: 58 Year
  Sex: Female

DRUGS (3)
  1. HUMIRA [Suspect]
     Active Substance: ADALIMUMAB
     Dosage: ?          OTHER FREQUENCY:EVERY OTHER WEEK;?
     Route: 058
     Dates: start: 20180213
  2. ESTRADIOL. [Concomitant]
     Active Substance: ESTRADIOL
     Dates: start: 20181217
  3. CHOLESTYRAM [Concomitant]
     Active Substance: CHOLESTYRAMINE
     Dates: start: 20191015

REACTIONS (5)
  - Weight fluctuation [None]
  - Abdominal pain [None]
  - Diarrhoea [None]
  - Fatigue [None]
  - Cholecystectomy [None]
